FAERS Safety Report 12711594 (Version 1)
Quarter: 2016Q3

REPORT INFORMATION
  Report Type: Spontaneous
  Country: US (occurrence: US)
  Receive Date: 20160902
  Receipt Date: 20160902
  Transmission Date: 20161109
  Serious: No
  Sender: FDA-Public Use
  Company Number: US-PFIZER INC-2016412160

PATIENT
  Age: 17 Year
  Sex: Female

DRUGS (3)
  1. BICILLIN L-A [Suspect]
     Active Substance: PENICILLIN G BENZATHINE
     Dosage: UNK
  2. SULFUR. [Suspect]
     Active Substance: SULFUR
     Dosage: UNK
  3. PENICILLIN VK [Suspect]
     Active Substance: PENICILLIN V POTASSIUM
     Dosage: UNK

REACTIONS (1)
  - Drug hypersensitivity [Unknown]
